FAERS Safety Report 6342728-2 (Version None)
Quarter: 2009Q3

REPORT INFORMATION
  Report Type: 
  Country: None (occurrence: None)
  Receive Date: 20090908
  Receipt Date: 20090831
  Transmission Date: 20100115
  Serious: Yes (Other)
  Sender: FDA-Public Use
  Company Number: DE-JNJFOC-20090705417

PATIENT
  Age: 59 Year
  Sex: Female

DRUGS (2)
  1. HALDOL [Suspect]
     Indication: DRUG USE FOR UNKNOWN INDICATION
     Dosage: INITIATED SINCE APPROXIMATELY 29 YEARS
     Route: 065
     Dates: start: 19800101
  2. NEUROPLANT [Concomitant]
     Indication: DEPRESSED MOOD
     Dosage: AS NESCESSARY
     Route: 065

REACTIONS (2)
  - BREAST MASS [None]
  - PROLACTINOMA [None]
